FAERS Safety Report 11130608 (Version 1)
Quarter: 2015Q2

REPORT INFORMATION
  Report Type: Spontaneous
  Country: US (occurrence: None)
  Receive Date: 20150520
  Receipt Date: 20150520
  Transmission Date: 20150821
  Serious: Yes (Other)
  Sender: FDA-Public Use
  Company Number: FK201502271

PATIENT
  Age: 51 Year
  Sex: Female

DRUGS (2)
  1. DEXAMETHASONE INJECTION (DEXAMETHASONE SODIUM PHOSPHATE) (DEXAMETHASONE SODIUM PHOSPHATE) [Suspect]
     Active Substance: DEXAMETHASONE SODIUM PHOSPHATE
     Indication: PRODUCT USED FOR UNKNOWN INDICATION
  2. NICARDIPINE [Concomitant]
     Active Substance: NICARDIPINE

REACTIONS (1)
  - Meningoencephalitis herpetic [None]
